FAERS Safety Report 6247168-2 (Version None)
Quarter: 2009Q2

REPORT INFORMATION
  Report Type: 
  Country: None (occurrence: None)
  Receive Date: 20090626
  Receipt Date: 20090623
  Transmission Date: 20091009
  Serious: Yes (Other)
  Sender: FDA-Public Use
  Company Number: US-JNJFOC-20090608357

PATIENT
  Sex: Female
  Weight: 89.36 kg

DRUGS (7)
  1. LEVAQUIN [Suspect]
     Indication: NASOPHARYNGITIS
     Route: 048
  2. TOPROL-XL [Concomitant]
     Route: 048
  3. TOPROL-XL [Concomitant]
     Indication: HYPERTENSION
     Route: 048
  4. FUROSEMIDE [Concomitant]
     Indication: HYPERTENSION
     Route: 048
  5. AMLODIPINE [Concomitant]
     Indication: HYPERTENSION
     Route: 048
  6. ASACOL [Concomitant]
     Indication: COLITIS ULCERATIVE
     Route: 048
  7. CARAFATE [Concomitant]
     Route: 048

REACTIONS (4)
  - DYSGEUSIA [None]
  - OROPHARYNGEAL BLISTERING [None]
  - SWOLLEN TONGUE [None]
  - THROAT TIGHTNESS [None]
